FAERS Safety Report 4452194-X (Version None)
Quarter: 2004Q3

REPORT INFORMATION
  Report Type: 
  Country: None (occurrence: None)
  Receive Date: 20040917
  Receipt Date: 20040714
  Transmission Date: 20050211
  Serious: Yes (Hospitalization)
  Sender: FDA-Public Use
  Company Number: PHNR2004AU01225

PATIENT
  Age: 55 Year
  Sex: Female

DRUGS (9)
  1. TRILEPTAL [Suspect]
     Indication: EPILEPSY
  2. TEGRETOL [Suspect]
     Indication: EPILEPSY
     Dosage: 800MG MANE, 400MG NOCTE
     Route: 048
  3. VITAMIN D [Concomitant]
  4. CALCIUM [Concomitant]
  5. ARTANE [Concomitant]
     Dosage: 2 MG, TID
  6. TOPIRMATE [Concomitant]
     Dosage: 100 MG, BID
  7. PHENOBARBITONE [Concomitant]
     Dosage: 60 MG, TID
  8. ACETAMINOPHEN [Concomitant]
  9. BENZHEXOL [Concomitant]

REACTIONS (25)
  - BLOOD CALCIUM DECREASED [None]
  - BLOOD MAGNESIUM DECREASED [None]
  - BLOOD THYROID STIMULATING HORMONE DECREASED [None]
  - C-REACTIVE PROTEIN INCREASED [None]
  - DISLOCATION OF JOINT PROSTHESIS [None]
  - FALL [None]
  - FEMORAL NECK FRACTURE [None]
  - HAEMATOCRIT DECREASED [None]
  - HAEMOGLOBIN INCREASED [None]
  - HIP ARTHROPLASTY [None]
  - HYPOKALAEMIA [None]
  - HYPONATRAEMIA [None]
  - IMPLANT SITE INFECTION [None]
  - INAPPROPRIATE ANTIDIURETIC HORMONE SECRETION [None]
  - INFECTION [None]
  - NAUSEA [None]
  - PATHOGEN RESISTANCE [None]
  - PLATELET COUNT INCREASED [None]
  - POOR VENOUS ACCESS [None]
  - POSTOPERATIVE INFECTION [None]
  - RED BLOOD CELL COUNT DECREASED [None]
  - SKELETAL INJURY [None]
  - STAPHYLOCOCCAL INFECTION [None]
  - VOMITING [None]
  - WHITE BLOOD CELL COUNT INCREASED [None]
